FAERS Safety Report 11552591 (Version 2)
Quarter: 2015Q4

REPORT INFORMATION
  Report Type: Report from Study
  Country: JP (occurrence: JP)
  Receive Date: 20150925
  Receipt Date: 20151125
  Transmission Date: 20160304
  Serious: Yes (Other)
  Sender: FDA-Public Use
  Company Number: JP-ROCHE-1637682

PATIENT

DRUGS (3)
  1. CARBOPLATIN. [Suspect]
     Active Substance: CARBOPLATIN
     Indication: MALIGNANT PLEURAL EFFUSION
     Dosage: AUC 6,ON DAY 1?4-6 CYCLES?INDUCTION TREATMENT
     Route: 065
  2. PEMETREXED [Suspect]
     Active Substance: PEMETREXED
     Indication: MALIGNANT PLEURAL EFFUSION
     Route: 065
  3. BEVACIZUMAB [Suspect]
     Active Substance: BEVACIZUMAB
     Indication: MALIGNANT PLEURAL EFFUSION
     Route: 065

REACTIONS (9)
  - Neutropenia [Unknown]
  - Decreased appetite [Unknown]
  - Infection [Unknown]
  - Leukopenia [Unknown]
  - Thrombocytopenia [Unknown]
  - Hypertension [Unknown]
  - Anaemia [Unknown]
  - Proteinuria [Unknown]
  - Liver injury [Unknown]
